FAERS Safety Report 6627637-3 (Version None)
Quarter: 2010Q1

REPORT INFORMATION
  Report Type: 
  Country: None (occurrence: None)
  Receive Date: 20100308
  Receipt Date: 20100226
  Transmission Date: 20100710
  Serious: Yes (Death, Hospitalization)
  Sender: FDA-Public Use
  Company Number: 2010SP000477

PATIENT
  Age: 64 Year
  Sex: Male

DRUGS (6)
  1. LUNESTA [Suspect]
     Dosage: 2 MG;HS;ORAL
     Route: 048
     Dates: start: 20070101, end: 20100101
  2. AMBIEN [Suspect]
     Indication: INSOMNIA
     Dosage: PRN
     Route: 051
  3. LORAZEPAM [Suspect]
     Indication: ANXIETY
     Dosage: PRN
     Route: 051
  4. ALCOHOL /00002101/ [Suspect]
  5. ALPRAZOLAM [Concomitant]
  6. COLACE [Concomitant]

REACTIONS (22)
  - AGITATION [None]
  - ANHEDONIA [None]
  - ANXIETY [None]
  - COMPLETED SUICIDE [None]
  - CONSTIPATION [None]
  - DEPRESSION [None]
  - DYSPHORIA [None]
  - GASTRIC DISORDER [None]
  - GASTROINTESTINAL DISORDER [None]
  - HYPOCHONDRIASIS [None]
  - INSOMNIA [None]
  - IRRITABLE BOWEL SYNDROME [None]
  - MULTIPLE DRUG OVERDOSE INTENTIONAL [None]
  - PALPITATIONS [None]
  - PELVIC FLOOR DYSSYNERGIA [None]
  - PROSTATIC DISORDER [None]
  - PSYCHOTIC DISORDER [None]
  - RASH [None]
  - SCHIZOID PERSONALITY DISORDER [None]
  - SOMATIC DELUSION [None]
  - URINARY TRACT DISORDER [None]
  - UROGENITAL DISORDER [None]
